FAERS Safety Report 4747588-9 (Version None)
Quarter: 2005Q3

REPORT INFORMATION
  Report Type: 
  Country: None (occurrence: None)
  Receive Date: 20050818
  Receipt Date: 20041018
  Transmission Date: 20060218
  Serious: No
  Sender: FDA-Public Use
  Company Number: US-BRISTOL-MYERS SQUIBB COMPANY-12739876

PATIENT
  Age: 70 Year
  Sex: Male
  Weight: 80 kg

DRUGS (10)
  1. TEQUIN [Suspect]
     Indication: PYREXIA
     Route: 048
     Dates: start: 20041010, end: 20041016
  2. NEOMYCIN [Concomitant]
  3. LEVODOPA [Concomitant]
  4. BENSERAZIDE [Concomitant]
  5. ACETAMINOPHEN [Concomitant]
  6. OMEPRAZOLE [Concomitant]
  7. LACTULOSE [Concomitant]
  8. THIAMINE [Concomitant]
  9. CYANOCOBALAMIN [Concomitant]
  10. PYRIDOXINE HCL [Concomitant]

REACTIONS (8)
  - ABDOMINAL PAIN [None]
  - ABNORMAL BEHAVIOUR [None]
  - AGITATION [None]
  - ANXIETY [None]
  - HALLUCINATION [None]
  - IRRITABILITY [None]
  - NIGHTMARE [None]
  - SPEECH DISORDER [None]
